FAERS Safety Report 19423912 (Version 1)
Quarter: 2021Q2

REPORT INFORMATION
  Report Type: Spontaneous
  Country: FR (occurrence: FR)
  Receive Date: 20210616
  Receipt Date: 20210616
  Transmission Date: 20210717
  Serious: Yes (Death)
  Sender: FDA-Public Use
  Company Number: FR-MYLANLABS-2021M1035277

PATIENT
  Age: 51 Year
  Sex: Female

DRUGS (5)
  1. METHADONE [Suspect]
     Active Substance: METHADONE HYDROCHLORIDE
     Indication: PRODUCT USED FOR UNKNOWN INDICATION
     Dosage: INCONNUE
     Route: 065
     Dates: end: 2019
  2. COCAINE [Suspect]
     Active Substance: COCAINE
     Indication: DRUG DEPENDENCE
     Dosage: INCONNUE
     Route: 065
     Dates: end: 2019
  3. BUPRENORPHINE. [Suspect]
     Active Substance: BUPRENORPHINE
     Indication: PRODUCT USED FOR UNKNOWN INDICATION
     Dosage: INCONNUE
     Route: 065
     Dates: end: 2019
  4. HEROIN [Suspect]
     Active Substance: DIAMORPHINE
     Indication: DRUG DEPENDENCE
     Dosage: INCONNUE
     Route: 065
     Dates: end: 2019
  5. BROMAZEPAM [Suspect]
     Active Substance: BROMAZEPAM
     Indication: PRODUCT USED FOR UNKNOWN INDICATION
     Dosage: INCONNUE
     Route: 065
     Dates: end: 2019

REACTIONS (2)
  - Drug abuse [Fatal]
  - Intentional product misuse [Unknown]
